FAERS Safety Report 15073304 (Version 3)
Quarter: 2018Q4

REPORT INFORMATION
  Report Type: Spontaneous
  Country: US (occurrence: US)
  Receive Date: 20180627
  Receipt Date: 20181024
  Transmission Date: 20190204
  Serious: No
  Sender: FDA-Public Use
  Company Number: PHEH2018US024302

PATIENT
  Age: 62 Year
  Sex: Male
  Weight: 119.2 kg

DRUGS (3)
  1. OMNITROPE [Suspect]
     Active Substance: SOMATROPIN
     Indication: GROWTH HORMONE DEFICIENCY
     Dosage: 0.6 MG, QD
     Route: 058
     Dates: start: 201801, end: 201806
  2. GENOTROPIN [Suspect]
     Active Substance: SOMATROPIN
     Indication: HAEMATOMA
     Dosage: 0.6 MG, QD
     Route: 065
     Dates: start: 2017
  3. GENOTROPIN [Suspect]
     Active Substance: SOMATROPIN
     Dosage: 0.6 MG, QD
     Route: 065

REACTIONS (3)
  - Fatigue [Unknown]
  - Drug effect incomplete [Unknown]
  - Cognitive disorder [Unknown]

NARRATIVE: CASE EVENT DATE: 20180531
